FAERS Safety Report 16047766 (Version 1)
Quarter: 2019Q1

REPORT INFORMATION
  Report Type: Spontaneous
  Country: FR (occurrence: FR)
  Receive Date: 20190307
  Receipt Date: 20190307
  Transmission Date: 20190418
  Serious: Yes (Disabling, Other)
  Sender: FDA-Public Use
  Company Number: FR-MYLANLABS-2019M1020855

PATIENT
  Age: 47 Year
  Sex: Female

DRUGS (1)
  1. TAMOXIFEN [Suspect]
     Active Substance: TAMOXIFEN
     Indication: BREAST CANCER
     Dosage: UNK
     Route: 048
     Dates: start: 20120501

REACTIONS (25)
  - Cognitive disorder [Unknown]
  - Tinnitus [Unknown]
  - Pain [Unknown]
  - Visual impairment [Unknown]
  - Disturbance in attention [Unknown]
  - Loss of personal independence in daily activities [Unknown]
  - Mental impairment [Unknown]
  - Depression [Unknown]
  - Dysstasia [Unknown]
  - Neuropathy peripheral [Unknown]
  - Tetany [Unknown]
  - Muscle contracture [Unknown]
  - Somatic hallucination [Unknown]
  - Muscle spasms [Unknown]
  - Insomnia [Unknown]
  - Intellectual disability [Unknown]
  - Reading disorder [Unknown]
  - Pain in extremity [Unknown]
  - Dizziness [Unknown]
  - Hot flush [Unknown]
  - Mental fatigue [Unknown]
  - Impaired work ability [Unknown]
  - Myalgia [Unknown]
  - Fatigue [Unknown]
  - Nausea [Unknown]
